FAERS Safety Report 10743713 (Version 1)
Quarter: 2015Q1

REPORT INFORMATION
  Report Type: Spontaneous
  Country: PT (occurrence: PT)
  Receive Date: 20150128
  Receipt Date: 20150128
  Transmission Date: 20150721
  Serious: Yes (Death, Hospitalization)
  Sender: FDA-Public Use
  Company Number: PT-ACCORD-028252

PATIENT
  Age: 46 Year
  Sex: Female

DRUGS (4)
  1. MYCOPHENOLIC ACID. [Suspect]
     Active Substance: MYCOPHENOLIC ACID
     Indication: RENAL TRANSPLANT
  2. PREDNISONE. [Suspect]
     Active Substance: PREDNISONE
     Indication: RENAL TRANSPLANT
  3. TACROLIMUS. [Suspect]
     Active Substance: TACROLIMUS
     Indication: RENAL TRANSPLANT
  4. AMPHOTERICIN B/AMPHOTERICIN B/LIPOSOME [Suspect]
     Active Substance: AMPHOTERICIN B
     Indication: HISTOPLASMOSIS

REACTIONS (10)
  - Multi-organ failure [Fatal]
  - Weight decreased [Unknown]
  - Ileal ulcer [None]
  - Abdominal pain upper [Unknown]
  - Malaise [Unknown]
  - Duodenal ulcer [None]
  - Histoplasmosis disseminated [Unknown]
  - Ulcer [Unknown]
  - Diarrhoea [Unknown]
  - Large intestinal ulcer [None]
